FAERS Safety Report 15587993 (Version 6)
Quarter: 2019Q2

REPORT INFORMATION
  Report Type: Spontaneous
  Country: US (occurrence: US)
  Receive Date: 20181105
  Receipt Date: 20190506
  Transmission Date: 20190711
  Serious: Yes (Hospitalization)
  Sender: FDA-Public Use
  Company Number: US-ACTELION-A-US2018-181147

PATIENT
  Sex: Male
  Weight: 10.88 kg

DRUGS (4)
  1. REMODULIN [Concomitant]
     Active Substance: TREPROSTINIL
  2. TADALAFIL. [Concomitant]
     Active Substance: TADALAFIL
  3. LETAIRIS [Concomitant]
     Active Substance: AMBRISENTAN
  4. TRACLEER [Suspect]
     Active Substance: BOSENTAN
     Indication: PULMONARY ARTERIAL HYPERTENSION
     Dosage: 32 MG, BID VIA G-TUBE
     Dates: end: 201903

REACTIONS (5)
  - Cyanosis [Unknown]
  - Pyrexia [Unknown]
  - Hospitalisation [Unknown]
  - Rhinovirus infection [Unknown]
  - Surgery [Unknown]
